FAERS Safety Report 10482681 (Version 2)
Quarter: 2014Q4

REPORT INFORMATION
  Report Type: Report from Study
  Country: MX (occurrence: MX)
  Receive Date: 20140929
  Receipt Date: 20141028
  Transmission Date: 20150528
  Serious: Yes (Hospitalization, Other)
  Sender: FDA-Public Use
  Company Number: PHHY2014MX127172

PATIENT
  Age: 76 Year
  Sex: Male

DRUGS (5)
  1. BACTRIM [Concomitant]
     Active Substance: SULFAMETHOXAZOLE\TRIMETHOPRIM
     Indication: ESCHERICHIA BACTERAEMIA
     Dosage: 2 DF, QD
     Route: 065
     Dates: start: 201408
  2. ZOMETA [Suspect]
     Active Substance: ZOLEDRONIC ACID
     Indication: METASTASES TO BONE
     Dosage: 4 MG, QD
     Route: 065
     Dates: start: 20140831, end: 201409
  3. ZOMETA [Suspect]
     Active Substance: ZOLEDRONIC ACID
     Dosage: 4 MG, UNK
     Route: 042
     Dates: start: 201409
  4. SOLPIREM [Concomitant]
     Indication: BLOOD URIC ACID
     Dosage: 1 DF, QD
     Route: 065
     Dates: start: 201305
  5. TRADOL [Concomitant]
     Indication: PAIN
     Dosage: 10 DF, UNK
     Route: 065
     Dates: start: 201408

REACTIONS (8)
  - General physical health deterioration [Recovered/Resolved]
  - Malaise [Unknown]
  - Malignant neoplasm progression [Not Recovered/Not Resolved]
  - Asthenia [Recovered/Resolved]
  - Metastases to bone [Not Recovered/Not Resolved]
  - Headache [Recovered/Resolved]
  - Nausea [Recovered/Resolved]
  - Tremor [Recovered/Resolved]

NARRATIVE: CASE EVENT DATE: 20140831
